FAERS Safety Report 23761472 (Version 1)
Quarter: 2024Q2

REPORT INFORMATION
  Report Type: Spontaneous
  Country: US (occurrence: US)
  Receive Date: 20240419
  Receipt Date: 20240419
  Transmission Date: 20240716
  Serious: Yes (Other)
  Sender: FDA-Public Use
  Company Number: US-BIOCODEX2-2023000169

PATIENT
  Age: 22 Year
  Sex: Female
  Weight: 40.8 kg

DRUGS (7)
  1. DIACOMIT [Suspect]
     Active Substance: STIRIPENTOL
     Indication: Severe myoclonic epilepsy of infancy
     Dosage: TAKE 250 MG AND 500 MG BY MOUTH IN TWO SEPERATE DOSES EACH DAY
     Route: 048
     Dates: start: 20230227
  2. DIACOMIT [Suspect]
     Active Substance: STIRIPENTOL
     Indication: Severe myoclonic epilepsy of infancy
     Dosage: TAKE 250 MG AND 500 MG BY MOUTH IN TWO SEPERATE DOSES EACH DAY
     Route: 048
     Dates: start: 20230214
  3. CLOBAZAM [Concomitant]
     Active Substance: CLOBAZAM
     Indication: Product used for unknown indication
     Dosage: 40MG 2 TIMES DAILY
     Route: 050
  4. EPIDIOLEX [Concomitant]
     Active Substance: CANNABIDIOL
     Indication: Product used for unknown indication
     Dosage: 1.5 ML AM/ 200 ML PM
     Route: 050
  5. KEPPRA [Concomitant]
     Active Substance: LEVETIRACETAM
     Indication: Product used for unknown indication
     Dosage: RESCUE MEDICINE ONLY
     Route: 050
  6. NORETHINDRONE [Concomitant]
     Active Substance: NORETHINDRONE
     Indication: Product used for unknown indication
     Dosage: ? TAB PM
     Route: 050
  7. VIMPAT [Concomitant]
     Active Substance: LACOSAMIDE
     Indication: Product used for unknown indication
     Dosage: 1.5 TABS/ 2X DAY
     Route: 050

REACTIONS (3)
  - Product preparation issue [Unknown]
  - Behaviour disorder [Unknown]
  - Change in seizure presentation [Unknown]
